FAERS Safety Report 7630864-X (Version None)
Quarter: 2011Q3

REPORT INFORMATION
  Report Type: 
  Country: None (occurrence: None)
  Receive Date: 20110723
  Receipt Date: 20110712
  Transmission Date: 20111222
  Serious: Yes (Hospitalization)
  Sender: FDA-Public Use
  Company Number: US-AMGEN-USASP2011035371

PATIENT
  Age: 65 Year
  Sex: Female

DRUGS (2)
  1. TREXALL [Concomitant]
     Dosage: 8 MG, QWK
  2. ENBREL [Suspect]
     Indication: RHEUMATOID ARTHRITIS
     Dosage: 50 MG, QWK
     Dates: start: 20090306, end: 20110101

REACTIONS (2)
  - RHEUMATOID ARTHRITIS [None]
  - DYSPNOEA [None]
